FAERS Safety Report 7608805-0 (Version None)
Quarter: 2011Q3

REPORT INFORMATION
  Report Type: 
  Country: None (occurrence: None)
  Receive Date: 20110714
  Receipt Date: 20110707
  Transmission Date: 20111222
  Serious: Yes (Other)
  Sender: FDA-Public Use
  Company Number: HU-PFIZER INC-2011154333

PATIENT
  Age: 73 Year
  Sex: Female
  Weight: 107 kg

DRUGS (8)
  1. ASPIRIN [Concomitant]
  2. LYRICA [Suspect]
     Dosage: UNK
     Dates: start: 20110401, end: 20110401
  3. GABAPENTIN [Concomitant]
  4. DOXAZOSIN [Concomitant]
     Dosage: UNK
  5. EDNIT [Concomitant]
     Dosage: UNK
  6. NEBIVOLOL HCL [Concomitant]
     Dosage: UNK
  7. CAVINTON [Concomitant]
  8. NITRODERM [Concomitant]

REACTIONS (1)
  - HEART RATE IRREGULAR [None]
